FAERS Safety Report 19714549 (Version 1)
Quarter: 2021Q3

REPORT INFORMATION
  Report Type: Spontaneous
  Country: US (occurrence: US)
  Receive Date: 20210818
  Receipt Date: 20210818
  Transmission Date: 20211014
  Serious: No
  Sender: FDA-Public Use
  Company Number: None

PATIENT
  Sex: Male
  Weight: 92.25 kg

DRUGS (20)
  1. POTASSIUM [Concomitant]
     Active Substance: POTASSIUM
  2. CILOSTAZOL. [Concomitant]
     Active Substance: CILOSTAZOL
  3. MULTIVITAMIN [Concomitant]
     Active Substance: VITAMINS
  4. ONDANSETRON [Concomitant]
     Active Substance: ONDANSETRON
  5. CIPRO [Concomitant]
     Active Substance: CIPROFLOXACIN HYDROCHLORIDE
  6. METFORMIN [Concomitant]
     Active Substance: METFORMIN HYDROCHLORIDE
  7. OMEPRAZOLE. [Concomitant]
     Active Substance: OMEPRAZOLE
  8. SEREVENT DISKUS [Concomitant]
     Active Substance: SALMETEROL XINAFOATE
  9. TRULICITY [Concomitant]
     Active Substance: DULAGLUTIDE
  10. CHANTIX [Concomitant]
     Active Substance: VARENICLINE TARTRATE
  11. CAPECITABINE TABLETS [Suspect]
     Active Substance: CAPECITABINE
     Indication: GALLBLADDER CANCER
     Dosage: ?          OTHER FREQUENCY:BID DAYS 1?14 / 21;?
     Route: 048
  12. FENOFIBRATE. [Concomitant]
     Active Substance: FENOFIBRATE
  13. OMEGA 3?6?9 [Concomitant]
     Active Substance: FISH OIL
  14. PROCHLORPERAZINE. [Concomitant]
     Active Substance: PROCHLORPERAZINE
  15. ACETAMINOPHEN. [Concomitant]
     Active Substance: ACETAMINOPHEN
  16. ASPIRIN. [Concomitant]
     Active Substance: ASPIRIN
  17. LISINOPRIL. [Concomitant]
     Active Substance: LISINOPRIL
  18. FLONASE [Concomitant]
     Active Substance: FLUTICASONE PROPIONATE
  19. SIMVASTATIN. [Concomitant]
     Active Substance: SIMVASTATIN
  20. TAMSULOSIN [Concomitant]
     Active Substance: TAMSULOSIN

REACTIONS (2)
  - Therapy cessation [None]
  - Disease progression [None]
